FAERS Safety Report 9772412 (Version 1)
Quarter: 2013Q4

REPORT INFORMATION
  Report Type: Spontaneous
  Country: ES (occurrence: GB)
  Receive Date: 20131219
  Receipt Date: 20131219
  Transmission Date: 20140711
  Serious: Yes (Other)
  Sender: FDA-Public Use
  Company Number: GB-FRI-1000052324

PATIENT
  Age: 56 Year
  Sex: Female
  Weight: 83 kg

DRUGS (2)
  1. ACLIDINIUM [Suspect]
     Indication: EMPHYSEMA
     Route: 055
     Dates: start: 20131105
  2. LANSOPRAZOLE [Concomitant]

REACTIONS (1)
  - Dyspepsia [Not Recovered/Not Resolved]
